FAERS Safety Report 8268265-6 (Version None)
Quarter: 2012Q2

REPORT INFORMATION
  Report Type: 
  Country: None (occurrence: None)
  Receive Date: 20120409
  Receipt Date: 20120326
  Transmission Date: 20120825
  Serious: Yes (Hospitalization, Other)
  Sender: FDA-Public Use
  Company Number: PHHY2012JP017961

PATIENT
  Sex: Male
  Weight: 0.78 kg

DRUGS (15)
  1. PROPOFOL [Suspect]
     Route: 064
  2. ATARAX [Concomitant]
     Route: 064
  3. GLUCOSE [Concomitant]
  4. BETAMETHASONE [Suspect]
     Route: 064
  5. FENTANYL CITRATE [Suspect]
     Route: 064
  6. SEVOFLURANE [Concomitant]
     Route: 064
     Dates: start: 20110416, end: 20110416
  7. PROPOFOL [Concomitant]
     Route: 064
     Dates: start: 20110416, end: 20110416
  8. ROCURONIUM BROMIDE [Suspect]
     Route: 064
  9. ROCURONIUM BROMIDE [Concomitant]
     Dates: start: 20110416, end: 20110416
  10. FENTANYL CITRATE [Concomitant]
     Dosage: UNK
     Route: 064
     Dates: start: 20110416, end: 20110416
  11. NICARDIPINE HCL [Suspect]
     Indication: BLOOD PRESSURE INCREASED
     Dosage: 120 MG, DAILY
     Route: 064
     Dates: start: 20110415, end: 20110416
  12. SUGAMMADEX [Suspect]
     Route: 064
  13. AOS [Suspect]
     Route: 064
  14. NEUPOGEN [Suspect]
     Route: 064
  15. MIDAZOLAM [Concomitant]
     Dates: start: 20110416, end: 20110416

REACTIONS (7)
  - TACHYPNOEA [None]
  - FOETAL EXPOSURE DURING PREGNANCY [None]
  - MATERNAL DRUGS AFFECTING FOETUS [None]
  - PREMATURE BABY [None]
  - LOW BIRTH WEIGHT BABY [None]
  - BLOOD GLUCOSE DECREASED [None]
  - CAESAREAN SECTION [None]
